FAERS Safety Report 8861333 (Version 1)
Quarter: 2012Q4

REPORT INFORMATION
  Report Type: Spontaneous
  Country: US (occurrence: None)
  Receive Date: 20121022
  Receipt Date: 20121022
  Transmission Date: 20130627
  Serious: Yes (Other)
  Sender: FDA-Public Use
  Company Number: ENTC2012-0469

PATIENT
  Age: 61 Year
  Sex: Female

DRUGS (7)
  1. STALEVO [Suspect]
     Route: 048
  2. CARBIDOPA W/LEVODOPA (LEVODOPA) [Concomitant]
  3. SIMVASTATIN (SIMVASTATIN)_ [Concomitant]
  4. GABAPENTIN (GABAPENTIN) [Concomitant]
  5. AMANTADINE (AMANTADINE) [Concomitant]
  6. METFORMIN (METFORMIN) [Concomitant]
  7. CLONAZEPAM (CLONAZEPAM) [Concomitant]

REACTIONS (4)
  - Incorrect dose administered [None]
  - Tremor [None]
  - Activities of daily living impaired [None]
  - Diabetes mellitus [None]
